FAERS Safety Report 8443296 (Version 9)
Quarter: 2013Q2

REPORT INFORMATION
  Report Type: Spontaneous
  Country: US (occurrence: US)
  Receive Date: 20120306
  Receipt Date: 20130415
  Transmission Date: 20140414
  Serious: Yes (Hospitalization, Other)
  Sender: FDA-Public Use
  Company Number: US-009507513-1203USA00317

PATIENT
  Sex: Female
  Weight: 60.91 kg

DRUGS (31)
  1. FOSAMAX [Suspect]
     Indication: OSTEOPENIA
     Dosage: 70 MG, QW
     Route: 048
     Dates: start: 20031229, end: 200805
  2. FOSAMAX [Suspect]
     Indication: OSTEOPOROSIS
  3. ALENDRONATE SODIUM [Suspect]
     Indication: OSTEOPENIA
     Dosage: 70 MG, UNK
     Route: 048
     Dates: start: 200805, end: 201107
  4. CALCIUM (UNSPECIFIED) (+) VITAMIN D (UNSPECIFIED) [Concomitant]
     Dosage: 1200 MG, UNK
     Route: 048
     Dates: start: 1990
  5. VITAMINS (UNSPECIFIED) [Concomitant]
     Dosage: 1 DF, QD
     Route: 048
     Dates: start: 2000
  6. CHONDROITIN [Concomitant]
     Dosage: 400 MG, UNK
     Route: 048
     Dates: start: 1990
  7. CHONDROITIN [Concomitant]
     Dosage: 500 UNK, UNK
     Route: 048
  8. ATENOLOL [Concomitant]
     Indication: MITRAL VALVE PROLAPSE
     Dosage: 25 MG, UNK
     Route: 048
     Dates: start: 1996
  9. ATENOLOL [Concomitant]
     Indication: HYPERTENSION
  10. LOSARTAN POTASSIUM [Concomitant]
     Indication: HYPERTENSION
     Dosage: 75 MG, UNK
  11. ARTHROTEC [Concomitant]
     Indication: ARTHRITIS
     Dosage: 50200 MG, UNK
     Route: 048
     Dates: start: 1998
  12. LORATADINE [Concomitant]
     Indication: HYPERSENSITIVITY
     Dosage: 10 MG, UNK
     Route: 048
     Dates: start: 2004
  13. LOTRISONE [Concomitant]
     Indication: VULVOVAGINAL PRURITUS
  14. CALCIUM (UNSPECIFIED) [Concomitant]
     Indication: OSTEOPOROSIS PROPHYLAXIS
     Dosage: 1000 MG, QD
     Route: 048
  15. NORTRIPTYLINE [Concomitant]
     Indication: FIBROMYALGIA
     Dosage: 75 MG, QPM
     Dates: start: 20020314
  16. VIOXX [Concomitant]
     Indication: FIBROMYALGIA
     Dosage: UNK MG, QD
     Dates: start: 20020314, end: 20040318
  17. PREMPRO [Concomitant]
  18. DEPO-MEDROL [Concomitant]
     Indication: BACK PAIN
  19. ZYRTEC [Concomitant]
     Indication: SINUSITIS
     Dosage: 1 DF, QD
     Route: 048
     Dates: start: 19991119
  20. GARLIC [Concomitant]
  21. ALESSE-28 [Concomitant]
     Indication: MENOPAUSE
     Dosage: UNK
     Dates: start: 20010501
  22. TYLENOL [Concomitant]
  23. DARVOCET-N [Concomitant]
     Indication: PAIN
     Dosage: UNK, BID
  24. IRON (UNSPECIFIED) (+) VITAMINS (UNSPECIFIED) [Concomitant]
  25. ASCORBIC ACID [Concomitant]
  26. NASONEX [Concomitant]
  27. CLARITIN [Concomitant]
  28. CYMBALTA [Concomitant]
     Indication: BACK PAIN
  29. CYMBALTA [Concomitant]
     Indication: SPINAL COLUMN INJURY
  30. LYRICA [Concomitant]
     Indication: BACK PAIN
  31. LYRICA [Concomitant]
     Indication: SPINAL COLUMN INJURY

REACTIONS (39)
  - Haemoglobin decreased [Unknown]
  - Medical device removal [Unknown]
  - Arthroscopy [Unknown]
  - Intramedullary rod insertion [Unknown]
  - Femur fracture [Unknown]
  - Low turnover osteopathy [Unknown]
  - Fracture delayed union [Not Recovered/Not Resolved]
  - Impaired healing [Not Recovered/Not Resolved]
  - Limb asymmetry [Not Recovered/Not Resolved]
  - Tooth extraction [Unknown]
  - Denture wearer [Unknown]
  - Breast lump removal [Unknown]
  - Leukocytosis [Unknown]
  - Pain [Not Recovered/Not Resolved]
  - Atelectasis [Unknown]
  - Sensory level abnormal [Unknown]
  - Hypertensive cardiomyopathy [Unknown]
  - Hypotension [Unknown]
  - Meniscus injury [Unknown]
  - Normochromic normocytic anaemia [Unknown]
  - Bone cyst [Unknown]
  - Chondromalacia [Unknown]
  - Medical device complication [Unknown]
  - Arthropathy [Unknown]
  - Anxiety [Unknown]
  - Palpitations [Unknown]
  - Liver disorder [Unknown]
  - Sleep disorder [Unknown]
  - Dyspnoea [Unknown]
  - Amnesia [Unknown]
  - Heart rate irregular [Unknown]
  - Thirst [Unknown]
  - Fatigue [Unknown]
  - Visual impairment [Unknown]
  - Arthralgia [Not Recovered/Not Resolved]
  - Constipation [Unknown]
  - Joint swelling [Unknown]
  - Pain in extremity [Unknown]
  - Myalgia [Unknown]
